FAERS Safety Report 18198706 (Version 1)
Quarter: 2020Q3

REPORT INFORMATION
  Report Type: Report from Study
  Country: DE (occurrence: DE)
  Receive Date: 20200826
  Receipt Date: 20200826
  Transmission Date: 20201103
  Serious: Yes (Death)
  Sender: FDA-Public Use
  Company Number: DE-PORTOLA PHARMACEUTICALS, INC.-2018DE000078

PATIENT
  Age: 92 Year
  Sex: Female

DRUGS (21)
  1. NOVODIGAL                          /00017701/ [Concomitant]
     Active Substance: DIGOXIN
     Dosage: UNK
     Dates: end: 20180815
  2. PERENTEROL [Concomitant]
     Active Substance: SACCHAROMYCES CEREVISIAE
     Dosage: UNK
     Dates: start: 20180815
  3. XARELTO [Concomitant]
     Active Substance: RIVAROXABAN
     Dosage: UNK
     Dates: end: 20180812
  4. RAMIPRIL. [Concomitant]
     Active Substance: RAMIPRIL
     Dosage: UNK
     Dates: end: 20180814
  5. HYDROCHLOROTHIAZIDE. [Concomitant]
     Active Substance: HYDROCHLOROTHIAZIDE
     Dosage: UNK
     Dates: end: 20180814
  6. DICLOFENAC [Concomitant]
     Active Substance: DICLOFENAC
     Dosage: UNK
     Dates: end: 20180813
  7. INSULIN RAPID [Concomitant]
     Active Substance: INSULIN NOS
     Dosage: UNK
     Dates: start: 20180813, end: 20180813
  8. UNACID                             /00903602/ [Concomitant]
     Active Substance: SULTAMICILLIN TOSYLATE
     Dosage: UNK
     Dates: start: 20180814
  9. ANDEXXA [Suspect]
     Active Substance: ANDEXANET ALFA
     Indication: PROCOAGULANT THERAPY
     Dosage: 400 MG, ONCE
     Route: 040
     Dates: start: 20180813, end: 20180813
  10. BELOC                              /00030002/ [Concomitant]
     Active Substance: PROPRANOLOL HYDROCHLORIDE
     Dosage: UNK
     Dates: start: 20180813, end: 20180813
  11. METOPROLOL. [Concomitant]
     Active Substance: METOPROLOL
     Dosage: UNK
     Dates: start: 20180814, end: 20180814
  12. POTASSIUM CHLORIDE. [Concomitant]
     Active Substance: POTASSIUM CHLORIDE
     Dosage: UNK
     Dates: start: 20180813, end: 20180813
  13. ATROVENT [Concomitant]
     Active Substance: IPRATROPIUM BROMIDE
     Dosage: UNK
     Dates: start: 20180814
  14. ANDEXXA [Suspect]
     Active Substance: ANDEXANET ALFA
     Dosage: 480 UNK, UNK
     Route: 042
     Dates: start: 20180813, end: 20180813
  15. MONO EMBOLEX [Concomitant]
     Active Substance: CERTOPARIN SODIUM
     Dosage: UNK
     Dates: start: 20180814
  16. NOVAMINSULFON [Concomitant]
     Active Substance: METAMIZOLE
     Dosage: UNK
     Dates: end: 20180813
  17. NOVALGIN (METAMIZOLE SODIUM) [Concomitant]
     Active Substance: METAMIZOLE SODIUM
     Dosage: UNK
     Dates: start: 20180814
  18. CLONIDINE. [Concomitant]
     Active Substance: CLONIDINE
     Dosage: UNK
     Dates: start: 20180814
  19. NEPRESOL                           /00007602/ [Concomitant]
     Active Substance: HYDRALAZINE HYDROCHLORIDE
     Dosage: UNK
     Dates: start: 20180814, end: 20180814
  20. PANTOZOL [Concomitant]
     Active Substance: PANTOPRAZOLE SODIUM
     Dosage: UNK
     Dates: end: 20180815
  21. URAPIDIL [Concomitant]
     Active Substance: URAPIDIL
     Dosage: UNK
     Dates: start: 20180813, end: 20180814

REACTIONS (1)
  - Ischaemic stroke [Fatal]

NARRATIVE: CASE EVENT DATE: 20180817
